FAERS Safety Report 4892414-0 (Version None)
Quarter: 2006Q1

REPORT INFORMATION
  Report Type: 
  Country: None (occurrence: None)
  Receive Date: 20060125
  Receipt Date: 20060125
  Transmission Date: 20060701
  Serious: Yes (Hospitalization)
  Sender: FDA-Public Use
  Company Number: None

PATIENT
  Age: 61 Year
  Sex: Male

DRUGS (12)
  1. METHOTREXATE [Suspect]
     Indication: MANTLE CELL LYMPHOMA
     Dosage: 1990 MG IV
     Route: 042
     Dates: start: 20050824, end: 20050825
  2. METHOTREXATE [Suspect]
     Indication: NON-HODGKIN'S LYMPHOMA
     Dosage: 1990 MG IV
     Route: 042
     Dates: start: 20050824, end: 20050825
  3. ALLOPURINOL [Concomitant]
  4. CIPRO [Concomitant]
  5. FLUCONAZOLE [Concomitant]
  6. ACYCLOVIR [Concomitant]
  7. BACTRIM [Concomitant]
  8. VALSARTAN [Concomitant]
  9. ATIVAN [Concomitant]
  10. HYDROCHLOROTHIAZIDE [Concomitant]
  11. METFORMIN [Concomitant]
  12. GLYBURIDE [Concomitant]

REACTIONS (4)
  - DRUG TOXICITY [None]
  - MUCOSAL INFLAMMATION [None]
  - NERVOUS SYSTEM DISORDER [None]
  - RENAL FAILURE [None]
